FAERS Safety Report 6360099-2 (Version None)
Quarter: 2009Q3

REPORT INFORMATION
  Report Type: 
  Country: None (occurrence: None)
  Receive Date: 20090917
  Receipt Date: 20090914
  Transmission Date: 20100115
  Serious: Yes (Death, Life-Threatening, Hospitalization, Other)
  Sender: FDA-Public Use
  Company Number: PHHY2009EE34599

PATIENT
  Sex: Female

DRUGS (7)
  1. TASIGNA [Suspect]
     Indication: CHRONIC MYELOID LEUKAEMIA
     Dosage: 400 MG, BID
     Route: 065
     Dates: start: 20071106, end: 20090802
  2. HYDREA [Concomitant]
     Dosage: 2500 MG/DAY
     Route: 065
     Dates: start: 20041201, end: 20050201
  3. HYDREA [Concomitant]
     Dosage: 1000 MG/DAY
     Route: 065
     Dates: start: 20050301, end: 20060101
  4. HYDREA [Concomitant]
     Dosage: 2000 MG/DAY
     Route: 065
     Dates: start: 20060101
  5. HYDREA [Concomitant]
     Dosage: 1500 MG/DAY
     Route: 065
     Dates: start: 20081001
  6. ASPIRIN [Concomitant]
     Dosage: 150 MG DAILY
     Route: 065
  7. TRANSFUSIONS [Concomitant]
     Dosage: UNK
     Route: 065
     Dates: start: 20090401

REACTIONS (3)
  - ANAEMIA [None]
  - MYOCARDIAL INFARCTION [None]
  - RENAL FAILURE [None]
